FAERS Safety Report 25786708 (Version 1)
Quarter: 2025Q3

REPORT INFORMATION
  Report Type: Spontaneous
  Country: US (occurrence: US)
  Receive Date: 20250910
  Receipt Date: 20250910
  Transmission Date: 20251021
  Serious: No
  Sender: PFIZER
  Company Number: US-PFIZER INC-202500177428

PATIENT
  Age: 74 Year
  Sex: Female
  Weight: 71.67 kg

DRUGS (5)
  1. CYTOMEL [Suspect]
     Active Substance: LIOTHYRONINE SODIUM
     Indication: Thyroid disorder
     Dosage: 5 UG, 2X/DAY
     Dates: start: 2005
  2. CYTOMEL [Suspect]
     Active Substance: LIOTHYRONINE SODIUM
     Indication: Autoimmune thyroiditis
  3. SYNTHROID [Suspect]
     Active Substance: LEVOTHYROXINE SODIUM
     Indication: Thyroid disorder
     Dosage: ONE TABLET A DAY
     Dates: start: 2005
  4. SYNTHROID [Suspect]
     Active Substance: LEVOTHYROXINE SODIUM
     Indication: Autoimmune thyroiditis
  5. PEPCID AC [Concomitant]
     Active Substance: FAMOTIDINE

REACTIONS (10)
  - Rash erythematous [Unknown]
  - Rash papular [Unknown]
  - Rash pruritic [Unknown]
  - Rash [Unknown]
  - Peripheral swelling [Unknown]
  - Thyroid dermatopathy [Unknown]
  - Skin fissures [Unknown]
  - Wound drainage [Not Recovered/Not Resolved]
  - Limb discomfort [Unknown]
  - Viral infection [Unknown]
